FAERS Safety Report 17689762 (Version 1)
Quarter: 2020Q2

REPORT INFORMATION
  Report Type: Spontaneous
  Country: US (occurrence: US)
  Receive Date: 20200421
  Receipt Date: 20200421
  Transmission Date: 20200714
  Serious: No
  Sender: FDA-Public Use
  Company Number: US-LEXICON PHARMACEUTICALS, INC-20-1606-00284

PATIENT
  Age: 70 Year
  Sex: Female

DRUGS (2)
  1. XERMELO [Suspect]
     Active Substance: TELOTRISTAT ETHYL
     Indication: CARCINOID TUMOUR OF THE DUODENUM
     Dates: start: 20181210
  2. SOMATULINE [Concomitant]
     Active Substance: LANREOTIDE ACETATE

REACTIONS (2)
  - Neuropathy peripheral [Unknown]
  - Abdominal pain upper [Unknown]
